FAERS Safety Report 25788113 (Version 2)
Quarter: 2025Q4

REPORT INFORMATION
  Report Type: Spontaneous
  Country: CA (occurrence: CA)
  Receive Date: 20250910
  Receipt Date: 20251001
  Transmission Date: 20260118
  Serious: Yes (Hospitalization, Other)
  Sender: AMERICAN REGENT
  Company Number: CA-AMERICAN REGENT INC-2025003430

PATIENT
  Age: 50 Year
  Sex: Female
  Weight: 68.027 kg

DRUGS (2)
  1. VENOFER [Suspect]
     Active Substance: IRON SUCROSE
     Indication: Iron deficiency anaemia
     Dosage: 300 MILLIGRAM, ONCE
     Route: 042
     Dates: start: 20250512, end: 20250512
  2. VENOFER [Suspect]
     Active Substance: IRON SUCROSE
     Indication: Heavy menstrual bleeding

REACTIONS (3)
  - Mobility decreased [Recovered/Resolved]
  - Muscle spasms [Recovered/Resolved]
  - Myalgia [Recovered/Resolved]

NARRATIVE: CASE EVENT DATE: 20250512
